FAERS Safety Report 4938495-7 (Version None)
Quarter: 2006Q1

REPORT INFORMATION
  Report Type: 
  Country: None (occurrence: None)
  Receive Date: 20060302
  Receipt Date: 20060213
  Transmission Date: 20060701
  Serious: Yes (Hospitalization)
  Sender: FDA-Public Use
  Company Number: FR200602002876

PATIENT
  Age: 79 Year
  Sex: Female

DRUGS (11)
  1. FORTEO [Suspect]
     Indication: OSTEOPOROSIS
     Dosage: 20 UG, DAILY (1/D), SUBCUTANEOUS
     Route: 058
     Dates: start: 20050621, end: 20060101
  2. FORTEO [Suspect]
     Indication: OSTEOPOROSIS
     Dosage: 20 UG, DAILY (1/D), SUBCUTANEOUS
     Route: 058
     Dates: start: 20060115
  3. FORTEO PEN (FORTEO PEN) [Concomitant]
  4. ASPEGIC 1000 [Concomitant]
  5. ISOPTIN [Concomitant]
  6. INEXIUM (ESOMEPRAZOLE) [Concomitant]
  7. COMBIVENT [Concomitant]
  8. NEXXAIR (BECLOMETASONE) [Concomitant]
  9. BETAHISTINE (BETAHISTINE) [Concomitant]
  10. NATISPRAY (GLYCERYL TRINITRATE) [Concomitant]
  11. NITROGLYCERIN [Concomitant]

REACTIONS (1)
  - ANGINA PECTORIS [None]
